FAERS Safety Report 4918216-4 (Version None)
Quarter: 2006Q1

REPORT INFORMATION
  Report Type: 
  Country: None (occurrence: None)
  Receive Date: 20060215
  Receipt Date: 20060207
  Transmission Date: 20060701
  Serious: Yes (Other)
  Sender: FDA-Public Use
  Company Number: 028-20785-05100033

PATIENT
  Age: 63 Year
  Sex: Male

DRUGS (7)
  1. THALOMID [Suspect]
     Indication: MYELOFIBROSIS
     Dosage: 50 MG, DAILY AT BEDTIME, ORAL
     Route: 048
     Dates: start: 20040623, end: 20050430
  2. THALOMID [Suspect]
  3. PLAQUENIL [Concomitant]
  4. METOPROLOL (METOPROLOL) [Concomitant]
  5. MOTRIN [Concomitant]
  6. LOSEC (OMEPRAZOLE) [Concomitant]
  7. FOSAMAX [Concomitant]

REACTIONS (2)
  - ASTHENIA [None]
  - PULMONARY HYPERTENSION [None]
